FAERS Safety Report 6770572-0 (Version None)
Quarter: 2010Q2

REPORT INFORMATION
  Report Type: 
  Country: None (occurrence: None)
  Receive Date: 20100615
  Receipt Date: 20100607
  Transmission Date: 20101027
  Serious: Yes (Hospitalization, Other)
  Sender: FDA-Public Use
  Company Number: PHHO2010US05445

PATIENT
  Age: 51 Year
  Sex: Male
  Weight: 85.6 kg

DRUGS (17)
  1. MYFORTIC [Suspect]
     Indication: RENAL TRANSPLANT
     Dosage: 540 MG, QD
     Route: 048
     Dates: start: 20081215
  2. PREDNISOLONE [Suspect]
     Indication: RENAL TRANSPLANT
     Dosage: 5 MG, QD
     Route: 048
     Dates: start: 20081211
  3. SEPTRA [Concomitant]
  4. VALCYTE [Concomitant]
  5. PREVACID [Concomitant]
  6. PANCREASE [Concomitant]
  7. ASPIRIN [Concomitant]
  8. LIPITOR [Concomitant]
  9. SENSIPAR [Concomitant]
  10. DOCUSATE SODIUM [Concomitant]
  11. LEXAPRO [Concomitant]
  12. METOPROLOL TARTRATE [Concomitant]
  13. FLOMAX [Concomitant]
  14. NORCO [Concomitant]
  15. FLUCONAZOLE [Concomitant]
  16. LANTUS [Concomitant]
  17. NOVOLOG [Concomitant]

REACTIONS (14)
  - BLADDER DILATATION [None]
  - BLADDER SPASM [None]
  - BLOOD PRESSURE ABNORMAL [None]
  - CHILLS [None]
  - DEVICE MALFUNCTION [None]
  - ENTEROCOCCAL INFECTION [None]
  - FATIGUE [None]
  - HYDRONEPHROSIS [None]
  - PYREXIA [None]
  - RENAL FAILURE ACUTE [None]
  - STAPHYLOCOCCUS TEST POSITIVE [None]
  - TACHYCARDIA [None]
  - URINARY INCONTINENCE [None]
  - URINARY TRACT INFECTION [None]
